FAERS Safety Report 22083772 (Version 2)
Quarter: 2024Q2

REPORT INFORMATION
  Report Type: Spontaneous
  Country: AU (occurrence: AU)
  Receive Date: 20230310
  Receipt Date: 20240423
  Transmission Date: 20240716
  Serious: Yes (Other)
  Sender: FDA-Public Use
  Company Number: AU-JNJFOC-20230313007

PATIENT

DRUGS (4)
  1. SIMPONI [Suspect]
     Active Substance: GOLIMUMAB
     Indication: Psoriatic arthropathy
     Route: 058
  2. SIMPONI [Suspect]
     Active Substance: GOLIMUMAB
     Indication: Axial spondyloarthritis
  3. SIMPONI [Suspect]
     Active Substance: GOLIMUMAB
     Indication: Inflammatory bowel disease
  4. ADALIMUMAB [Suspect]
     Active Substance: ADALIMUMAB\ISOPROPYL ALCOHOL
     Indication: Product used for unknown indication
     Route: 058

REACTIONS (3)
  - Inflammatory bowel disease [Not Recovered/Not Resolved]
  - Psoriatic arthropathy [Unknown]
  - Therapeutic response decreased [Unknown]
